FAERS Safety Report 24638106 (Version 2)
Quarter: 2025Q3

REPORT INFORMATION
  Report Type: Report from Study
  Country: CA (occurrence: CA)
  Receive Date: 20241119
  Receipt Date: 20250802
  Transmission Date: 20251021
  Serious: Yes (Other)
  Sender: ALEXION PHARMACEUTICALS
  Company Number: CA-AstraZeneca-CH-00744538A

PATIENT
  Sex: Female

DRUGS (12)
  1. BENRALIZUMAB [Suspect]
     Active Substance: BENRALIZUMAB
     Indication: Asthma
  2. BACLOFEN [Concomitant]
     Active Substance: BACLOFEN
     Route: 065
  3. LEFLUNOMIDE [Concomitant]
     Active Substance: LEFLUNOMIDE
     Route: 065
  4. FENTANYL [Concomitant]
     Active Substance: FENTANYL
  5. AMITRIPTYLINE [Concomitant]
     Active Substance: AMITRIPTYLINE
  6. PREDNISONE [Concomitant]
     Active Substance: PREDNISONE
  7. VENTOLIN [Concomitant]
     Active Substance: ALBUTEROL SULFATE
  8. DYMISTA [Concomitant]
     Active Substance: AZELASTINE HYDROCHLORIDE\FLUTICASONE PROPIONATE
  9. ACYCLOVIR [Concomitant]
     Active Substance: ACYCLOVIR
  10. BREO ELLIPTA [Concomitant]
     Active Substance: FLUTICASONE FUROATE\VILANTEROL TRIFENATATE
  11. RANITIDINE [Concomitant]
     Active Substance: RANITIDINE
  12. RABEPRAZOLE [Concomitant]
     Active Substance: RABEPRAZOLE

REACTIONS (2)
  - Choking [Unknown]
  - Dyspnoea [Unknown]
